FAERS Safety Report 6841657-5 (Version None)
Quarter: 2010Q3

REPORT INFORMATION
  Report Type: 
  Country: None (occurrence: None)
  Receive Date: 20100714
  Receipt Date: 20071208
  Transmission Date: 20110219
  Serious: No
  Sender: FDA-Public Use
  Company Number: US-PFIZER INC-2007056915

PATIENT
  Sex: Male
  Weight: 108.9 kg

DRUGS (7)
  1. CHANTIX [Suspect]
     Indication: SMOKING CESSATION THERAPY
     Route: 048
     Dates: start: 20070627, end: 20070713
  2. CHANTIX [Suspect]
     Dates: start: 20071204
  3. DEPAKOTE [Concomitant]
  4. LEXAPRO [Concomitant]
  5. LORAZEPAM [Concomitant]
  6. LOTREL [Concomitant]
  7. ATENOLOL [Concomitant]

REACTIONS (6)
  - ABDOMINAL PAIN UPPER [None]
  - ABNORMAL DREAMS [None]
  - INTENTIONAL DRUG MISUSE [None]
  - NAUSEA [None]
  - NERVOUSNESS [None]
  - VOMITING [None]
